FAERS Safety Report 5469729-0 (Version None)
Quarter: 2007Q3

REPORT INFORMATION
  Report Type: 
  Country: None (occurrence: None)
  Receive Date: 20070927
  Receipt Date: 20070406
  Transmission Date: 20080115
  Serious: No
  Sender: FDA-Public Use
  Company Number: US-AMGEN-US218477

PATIENT
  Sex: Male

DRUGS (5)
  1. NEUPOGEN [Suspect]
     Indication: NEUTROPENIA
     Dates: start: 20021101, end: 20030127
  2. ANTIHYPERTENSIVES [Concomitant]
  3. GLUCOPHAGE [Concomitant]
  4. PEGYLATED INTERFERON ALFA-2B [Concomitant]
  5. REBETOL [Concomitant]

REACTIONS (1)
  - DRUG INEFFECTIVE [None]
